FAERS Safety Report 5287417-0 (Version None)
Quarter: 2007Q1

REPORT INFORMATION
  Report Type: 
  Country: None (occurrence: None)
  Receive Date: 20070116
  Receipt Date: 20060927
  Transmission Date: 20070707
  Serious: No
  Sender: FDA-Public Use
  Company Number: 2006SP003436

PATIENT
  Age: 81 Year
  Sex: Female
  Weight: 56.6996 kg

DRUGS (12)
  1. LUNESTA [Suspect]
     Dosage: 2 MG; ORAL
     Route: 048
     Dates: start: 20060101
  2. SIMVASTATIN [Suspect]
     Dosage: HS; ORAL
     Route: 048
     Dates: start: 20060101
  3. AMBIEN [Concomitant]
  4. ALDORIL 15 [Concomitant]
  5. ESTRADIOL [Concomitant]
  6. CHLORDIAZEPOXIDE W/CLIDINIUM BROMIDE [Concomitant]
  7. ALLOPURINOL [Concomitant]
  8. ZANTAC [Concomitant]
  9. TUMS [Concomitant]
  10. LOMOTIL [Concomitant]
  11. CLORAZEPATE [Concomitant]
  12. ACETAMINOPHEN W/PROPOXYPHENE [Concomitant]

REACTIONS (1)
  - INSOMNIA [None]
